FAERS Safety Report 9168738 (Version 1)
Quarter: 2013Q1

REPORT INFORMATION
  Report Type: Spontaneous
  Country: SE (occurrence: None)
  Receive Date: 20130308
  Receipt Date: 20130308
  Transmission Date: 20140127
  Serious: Yes (Hospitalization)
  Sender: FDA-Public Use
  Company Number: SYM-2013-01386

PATIENT
  Age: 39 Year
  Sex: Male

DRUGS (13)
  1. ENALAPRIL MALEATE [Suspect]
     Indication: PRODUCT USED FOR UNKNOWN INDICATION
     Route: 048
     Dates: start: 201210
  2. ATACAND [Suspect]
     Indication: PRODUCT USED FOR UNKNOWN INDICATION
     Route: 048
     Dates: start: 201210
  3. ZANIDIP [Suspect]
     Route: 048
     Dates: start: 201210
  4. OXYNORM (OXYCODONE HYDROCHLORIDE) (UNKNOWN) (OXYCODONE HYDROCHLORIDE) [Concomitant]
  5. PROGRAF (TACROLIMUS) (UNKNOWN) (TACROLIMUS) [Concomitant]
  6. OMEPRAZOLE (OMEPRAZOLE) (UNKNOWN) (OMEPRAZOLE) [Concomitant]
  7. RENVELA (SEVELAMER CARBONATE) (UNKNOWN) (SEVELAMER CARBONATE) [Concomitant]
  8. FOLACIN (FOLIC ACID) (UNKNOWN) )FOLIC ACID) [Concomitant]
  9. PANODIL (PARACETAMOL) (UNKNOWN) (PARACETAMOL) [Concomitant]
  10. BEHEPAN (CYANOCOBALAMIN) (CYANOCOBALAMIN) [Concomitant]
  11. FURIX (FUROSEMIDE) (UNKNOWN) (FUROSEMIDE) [Concomitant]
  12. SPIRONOLACTONE (UNKNOWN) (SPINONOLACTONE) [Concomitant]
  13. PREDNISOLONE (PREDNISOLONE) (UNKNOWN) (PREDNISOLONE) [Concomitant]

REACTIONS (2)
  - Cholestasis [None]
  - Hepatotoxicity [None]
